FAERS Safety Report 8354639 (Version 2)
Quarter: 2012Q4

REPORT INFORMATION
  Report Type: 
  Country: US (occurrence: US)
  Receive Date: 20120125
  Receipt Date: 20121105
  Transmission Date: 20130627
  Serious: Yes (Other)
  Sender: FDA-Public Use
  Company Number: PHEH2012US000613

PATIENT
  Age: 76 Year
  Sex: Female
  Weight: 81.2 kg

DRUGS (10)
  1. DIOVAN [Suspect]
     Indication: HYPERTENSION
     Dosage: 80 mg, daily
     Route: 048
     Dates: start: 200911, end: 201011
  2. DIOVAN [Suspect]
     Dosage: 40 mg, daily
     Route: 048
     Dates: start: 201011, end: 20110103
  3. THYROID PREPARATIONS [Concomitant]
     Dosage: UNK
  4. VITAMINS NOS [Concomitant]
  5. IBUPROFEN [Concomitant]
     Dosage: UNK UKN, PRN
  6. LEVOXYL [Concomitant]
     Indication: HYPOTHYROIDISM
     Dosage: 112 ug, daily
     Dates: start: 200509
  7. ALEVE [Concomitant]
     Indication: PAIN
     Dosage: 220 mg, PRN
     Route: 048
  8. ASA [Concomitant]
     Dosage: 2 DF, daily
  9. FISH OIL [Concomitant]
     Indication: CARDIAC DISORDER
     Dosage: 1000 mg, daily
     Route: 048
  10. GLUCOSAMINE [Concomitant]
     Indication: ARTHRALGIA
     Route: 048

REACTIONS (19)
  - Hepatotoxicity [Unknown]
  - Hepatic enzyme increased [Recovering/Resolving]
  - Viral infection [Recovering/Resolving]
  - Pyrexia [Recovering/Resolving]
  - Headache [Recovering/Resolving]
  - Myalgia [Recovering/Resolving]
  - Influenza like illness [Unknown]
  - Pain [Unknown]
  - Purpura [Unknown]
  - Acne [Unknown]
  - Varicella [Unknown]
  - Poor quality sleep [Unknown]
  - Scar [Unknown]
  - Wrong technique in drug usage process [Unknown]
  - Rash pruritic [Recovering/Resolving]
  - Cough [Unknown]
  - Fatigue [Unknown]
  - Nausea [Unknown]
  - Abdominal pain [Unknown]
